FAERS Safety Report 16172280 (Version 3)
Quarter: 2019Q2

REPORT INFORMATION
  Report Type: Report from Study
  Country: US (occurrence: US)
  Receive Date: 20190409
  Receipt Date: 20190610
  Transmission Date: 20190711
  Serious: Yes (Other)
  Sender: FDA-Public Use
  Company Number: US-ROCHE-2298154

PATIENT
  Age: 48 Year
  Sex: Female
  Weight: 77.18 kg

DRUGS (2)
  1. OCREVUS [Suspect]
     Active Substance: OCRELIZUMAB
     Indication: RELAPSING-REMITTING MULTIPLE SCLEROSIS
     Dosage: ONGOING:UNKNOWN
     Route: 065
     Dates: start: 20181026
  2. OCREVUS [Suspect]
     Active Substance: OCRELIZUMAB
     Indication: RELAPSING MULTIPLE SCLEROSIS
     Dosage: ONGOING:UNKNOWN?SECOND DOSE
     Route: 065
     Dates: start: 20181109

REACTIONS (4)
  - Multiple sclerosis relapse [Recovering/Resolving]
  - Infection [Not Recovered/Not Resolved]
  - Oral herpes [Recovered/Resolved]
  - B-lymphocyte count decreased [Unknown]

NARRATIVE: CASE EVENT DATE: 201811
